FAERS Safety Report 6011546-7 (Version None)
Quarter: 2008Q4

REPORT INFORMATION
  Report Type: 
  Country: None (occurrence: None)
  Receive Date: 20081218
  Receipt Date: 20080908
  Transmission Date: 20090506
  Serious: No
  Sender: FDA-Public Use
  Company Number: US-ASTRAZENECA-2008UW18510

PATIENT
  Age: 61 Year
  Sex: Male
  Weight: 102.1 kg

DRUGS (7)
  1. CRESTOR [Suspect]
     Indication: BLOOD CALCIUM INCREASED
     Route: 048
     Dates: start: 20080501, end: 20080101
  2. CLONIDINE [Concomitant]
  3. CARVEDILOL [Concomitant]
  4. FLOMAX [Concomitant]
  5. AVODART [Concomitant]
  6. MULTI-VITAMIN [Concomitant]
  7. ASPIRIN [Concomitant]

REACTIONS (3)
  - BLOOD PRESSURE INCREASED [None]
  - COUGH [None]
  - DYSPNOEA [None]
